FAERS Safety Report 5087336-9 (Version None)
Quarter: 2006Q3

REPORT INFORMATION
  Report Type: 
  Country: None (occurrence: None)
  Receive Date: 20060823
  Receipt Date: 20060823
  Transmission Date: 20061208
  Serious: Yes (Other)
  Sender: FDA-Public Use
  Company Number: None

PATIENT
  Age: 65 Year
  Sex: Male
  Weight: 78.9259 kg

DRUGS (1)
  1. ACIPHEX [Suspect]
     Indication: GASTRIC ULCER
     Dosage: 1    DAILY    PO
     Route: 048
     Dates: start: 20060724, end: 20060728

REACTIONS (5)
  - CHILLS [None]
  - COUGH [None]
  - GASTROOESOPHAGEAL REFLUX DISEASE [None]
  - PYREXIA [None]
  - VIRAL INFECTION [None]
